FAERS Safety Report 9206536 (Version 2)
Quarter: 2013Q2

REPORT INFORMATION
  Report Type: Spontaneous
  Country: JP (occurrence: JP)
  Receive Date: 20130403
  Receipt Date: 20130410
  Transmission Date: 20140414
  Serious: Yes (Other)
  Sender: FDA-Public Use
  Company Number: JP-PFIZER INC-2013105735

PATIENT
  Age: 82 Year
  Sex: Female

DRUGS (3)
  1. JZOLOFT [Suspect]
     Dosage: 25 MG, 1X/DAY
     Route: 048
  2. CRESTOR [Suspect]
     Dosage: UNK
  3. DEPAKENE [Suspect]
     Dosage: UNK

REACTIONS (1)
  - Rhabdomyolysis [Recovered/Resolved]
